FAERS Safety Report 9979772 (Version 1)
Quarter: 2014Q1

REPORT INFORMATION
  Report Type: Spontaneous
  Country: US (occurrence: US)
  Receive Date: 20140306
  Receipt Date: 20140306
  Transmission Date: 20141002
  Serious: No
  Sender: FDA-Public Use
  Company Number: US-ABBVIE-13P-163-1172641-00

PATIENT
  Age: 21 Year
  Sex: Female
  Weight: 53.57 kg

DRUGS (1)
  1. HUMIRA [Suspect]
     Indication: CROHN^S DISEASE
     Dates: start: 20130916, end: 20131022

REACTIONS (1)
  - Injection site rash [Recovered/Resolved]
